FAERS Safety Report 4641507-1 (Version None)
Quarter: 2005Q2

REPORT INFORMATION
  Report Type: 
  Country: None (occurrence: None)
  Receive Date: 20050421
  Receipt Date: 20050413
  Transmission Date: 20051028
  Serious: Yes (Hospitalization)
  Sender: FDA-Public Use
  Company Number: 2005JP000726

PATIENT
  Age: 45 Year
  Sex: Male
  Weight: 56 kg

DRUGS (3)
  1. CEFAZOLIN SODIUM [Suspect]
     Indication: ANTIBACTERIAL PROPHYLAXIS
     Dosage: 1G TWICE PER DAY
     Route: 042
     Dates: start: 20050128, end: 20050201
  2. SEVOFLURANE [Suspect]
     Indication: ILL-DEFINED DISORDER
     Route: 055
     Dates: start: 20050128, end: 20050128
  3. THIOPENTAL SODIUM [Suspect]
     Indication: ILL-DEFINED DISORDER
     Dosage: 300MG PER DAY
     Route: 042
     Dates: start: 20050128, end: 20050128

REACTIONS (8)
  - ALANINE AMINOTRANSFERASE INCREASED [None]
  - ASPARTATE AMINOTRANSFERASE INCREASED [None]
  - BLOOD ALKALINE PHOSPHATASE INCREASED [None]
  - BLOOD BILIRUBIN INCREASED [None]
  - BLOOD LACTATE DEHYDROGENASE INCREASED [None]
  - GAMMA-GLUTAMYLTRANSFERASE INCREASED [None]
  - JAUNDICE [None]
  - LIVER DISORDER [None]
